FAERS Safety Report 8126599 (Version 2)
Quarter: 2014Q2

REPORT INFORMATION
  Report Type: Spontaneous
  Country: US (occurrence: US)
  Receive Date: 20110908
  Receipt Date: 20140606
  Transmission Date: 20141212
  Serious: Yes (Death, Hospitalization)
  Sender: FDA-Public Use
  Company Number: US-GLAXOSMITHKLINE-A0810734A

PATIENT
  Age: 64 Year
  Sex: Male

DRUGS (2)
  1. AVANDIA [Suspect]
     Indication: DIABETES MELLITUS
     Dosage: 4MG PER DAY
     Route: 048
     Dates: start: 200301, end: 200707
  2. CELEBREX [Concomitant]
     Dosage: 200MG PER DAY
     Route: 048

REACTIONS (4)
  - Cardiac arrest [Fatal]
  - Myocardial infarction [Unknown]
  - Cardiac disorder [Unknown]
  - Amnesia [Unknown]
